FAERS Safety Report 7013859-9 (Version None)
Quarter: 2010Q3

REPORT INFORMATION
  Report Type: 
  Country: None (occurrence: None)
  Receive Date: 20100924
  Receipt Date: 20100917
  Transmission Date: 20110219
  Serious: Yes (Hospitalization, Other)
  Sender: FDA-Public Use
  Company Number: US-ABBOTT-10P-163-0664068-00

PATIENT
  Sex: Female
  Weight: 47.216 kg

DRUGS (11)
  1. HUMIRA [Suspect]
     Indication: CROHN'S DISEASE
     Route: 050
     Dates: start: 20091221, end: 20100826
  2. PRENATAL VITAMINS [Concomitant]
     Indication: PRODUCT USED FOR UNKNOWN INDICATION
     Dosage: 1 PILL QD
     Route: 048
     Dates: start: 20100203, end: 20100826
  3. CALCIUM [Concomitant]
     Indication: PRODUCT USED FOR UNKNOWN INDICATION
     Route: 048
     Dates: start: 20100304, end: 20100826
  4. CALCIUM [Concomitant]
     Route: 048
     Dates: start: 20091221, end: 20100303
  5. TEA [Concomitant]
     Indication: PRODUCT USED FOR UNKNOWN INDICATION
     Dosage: 1 SERVING DAILY
     Route: 048
     Dates: start: 20100202, end: 20100826
  6. VIGAMOX [Concomitant]
     Indication: CONJUNCTIVITIS INFECTIVE
     Route: 047
     Dates: start: 20100508, end: 20100512
  7. VICKS VAPOSTEAM LIQUID MEDICATION [Concomitant]
     Indication: NASOPHARYNGITIS
     Dosage: 3 TOTAL APPLIED TO FACE, SCALP
     Route: 061
     Dates: start: 20100505, end: 20100512
  8. TYLENOL [Concomitant]
     Indication: PRODUCT USED FOR UNKNOWN INDICATION
     Dosage: 2 PILLS QD
     Route: 048
     Dates: start: 20100505, end: 20100506
  9. RANITIDINE [Concomitant]
     Indication: DYSPEPSIA
     Route: 042
     Dates: start: 20100813, end: 20100816
  10. METHYLDOPA [Concomitant]
     Indication: HYPERTENSION
     Route: 042
     Dates: start: 20100813, end: 20100816
  11. METHYLDOPA [Concomitant]
     Route: 048
     Dates: start: 20100817, end: 20100826

REACTIONS (4)
  - CONJUNCTIVITIS INFECTIVE [None]
  - CROHN'S DISEASE [None]
  - RESPIRATORY TRACT INFECTION [None]
  - SMALL INTESTINAL OBSTRUCTION [None]
